FAERS Safety Report 9413407 (Version 2)
Quarter: 2013Q3

REPORT INFORMATION
  Report Type: Report from Study
  Country: AT (occurrence: AT)
  Receive Date: 20130722
  Receipt Date: 20130730
  Transmission Date: 20140515
  Serious: Yes (Hospitalization)
  Sender: FDA-Public Use
  Company Number: AT-BRISTOL-MYERS SQUIBB COMPANY-19106574

PATIENT
  Age: 55 Year
  Sex: Male

DRUGS (4)
  1. IPILIMUMAB [Suspect]
     Indication: METASTATIC MALIGNANT MELANOMA
     Route: 042
     Dates: start: 20120703, end: 20120904
  2. PREDNISONE [Concomitant]
  3. AVELOX [Concomitant]
     Route: 048
  4. FLUCONAZOLE [Concomitant]

REACTIONS (1)
  - Atrial flutter [Not Recovered/Not Resolved]
